FAERS Safety Report 23871449 (Version 1)
Quarter: 2024Q2

REPORT INFORMATION
  Report Type: Report from Study
  Country: CA (occurrence: CA)
  Receive Date: 20240519
  Receipt Date: 20240519
  Transmission Date: 20240716
  Serious: Yes (Hospitalization, Other)
  Sender: FDA-Public Use
  Company Number: CA-JNJFOC-20240526618

PATIENT
  Age: 85 Year
  Sex: Male

DRUGS (11)
  1. TREMFYA [Suspect]
     Active Substance: GUSELKUMAB
     Indication: Psoriatic arthropathy
     Route: 058
     Dates: start: 20210303
  2. TREMFYA [Suspect]
     Active Substance: GUSELKUMAB
     Indication: Psoriasis
  3. METFORMIN [Concomitant]
     Active Substance: METFORMIN HYDROCHLORIDE
  4. DABIGATRAN [Concomitant]
     Active Substance: DABIGATRAN
  5. TEVA PERINDOPRIL [Concomitant]
  6. INDAPAMIDE [Concomitant]
     Active Substance: INDAPAMIDE
  7. ROSUVASTATIN [Concomitant]
     Active Substance: ROSUVASTATIN
  8. ZOPICLONE [Concomitant]
     Active Substance: ZOPICLONE
  9. DILTIAZEM HYDROCHLORIDE [Concomitant]
     Active Substance: DILTIAZEM HYDROCHLORIDE
  10. FERROUS SULFATE [Concomitant]
     Active Substance: FERROUS SULFATE
  11. SUCRALFATE [Concomitant]
     Active Substance: SUCRALFATE

REACTIONS (4)
  - Medical device implantation [Recovered/Resolved]
  - Haemoglobin decreased [Recovered/Resolved]
  - Nasopharyngitis [Unknown]
  - Influenza [Unknown]

NARRATIVE: CASE EVENT DATE: 20240430
